FAERS Safety Report 9559515 (Version 1)
Quarter: 2013Q3

REPORT INFORMATION
  Report Type: Spontaneous
  Country: US (occurrence: None)
  Receive Date: 20130925
  Receipt Date: 20130925
  Transmission Date: 20140515
  Serious: Yes (Other)
  Sender: FDA-Public Use
  Company Number: 001600996A

PATIENT
  Age: 56 Year
  Sex: Male

DRUGS (1)
  1. PROACTIV RENEWING CLEANSER [Suspect]
     Indication: ACNE
     Dosage: ONCE DAILY DERMAL
     Dates: start: 20130228, end: 20130725

REACTIONS (2)
  - Swelling face [None]
  - Dyspnoea [None]
